FAERS Safety Report 4325381-9 (Version None)
Quarter: 2004Q1

REPORT INFORMATION
  Report Type: 
  Country: None (occurrence: None)
  Receive Date: 20040324
  Receipt Date: 20040311
  Transmission Date: 20041129
  Serious: Yes (Hospitalization)
  Sender: FDA-Public Use
  Company Number: 04P-163-0253458-00

PATIENT
  Sex: 0

DRUGS (4)
  1. TARKA [Suspect]
  2. COUMADIN [Concomitant]
  3. ATORVASTATIN [Concomitant]
  4. INSULIN [Concomitant]

REACTIONS (1)
  - INTERNATIONAL NORMALISED RATIO INCREASED [None]
